FAERS Safety Report 11744812 (Version 1)
Quarter: 2015Q4

REPORT INFORMATION
  Report Type: Spontaneous
  Country: GB (occurrence: GB)
  Receive Date: 20151116
  Receipt Date: 20151116
  Transmission Date: 20160304
  Serious: Yes (Other)
  Sender: FDA-Public Use
  Company Number: GB-TEVA-607201ACC

PATIENT
  Age: 20 Year
  Sex: Female
  Weight: 78 kg

DRUGS (6)
  1. ERYTHROMYCIN. [Concomitant]
     Active Substance: ERYTHROMYCIN
  2. RANITIDINE HYDROCHLORIDE. [Concomitant]
     Active Substance: RANITIDINE HYDROCHLORIDE
  3. IRON [Concomitant]
     Active Substance: IRON
  4. NAPROXEN. [Suspect]
     Active Substance: NAPROXEN
     Indication: TENSION HEADACHE
     Route: 048
     Dates: start: 20151022, end: 20151023
  5. MILLINETTE [Concomitant]
  6. MEBEVERINE [Concomitant]
     Active Substance: MEBEVERINE

REACTIONS (8)
  - Nausea [Recovering/Resolving]
  - Hallucination, visual [Recovered/Resolved]
  - Cold sweat [Recovered/Resolved]
  - Tachycardia [Recovered/Resolved]
  - Night sweats [Recovered/Resolved]
  - Pyrexia [Recovered/Resolved]
  - Insomnia [Recovering/Resolving]
  - Vomiting [Recovered/Resolved]

NARRATIVE: CASE EVENT DATE: 20151023
